FAERS Safety Report 9193387 (Version 2)
Quarter: 2013Q1

REPORT INFORMATION
  Report Type: Spontaneous
  Country: DE (occurrence: DE)
  Receive Date: 20130327
  Receipt Date: 20130328
  Transmission Date: 20140127
  Serious: Yes (Other)
  Sender: FDA-Public Use
  Company Number: DE-ROCHE-1181767

PATIENT
  Age: 60 Year
  Sex: Female
  Weight: 56 kg

DRUGS (6)
  1. AVASTIN [Suspect]
     Indication: CHOROIDAL NEOVASCULARISATION
     Dosage: 1ST CYCLE
     Route: 050
     Dates: start: 20120719
  2. AVASTIN [Suspect]
     Dosage: 2ND CYCLE
     Route: 050
     Dates: start: 20120816
  3. AVASTIN [Suspect]
     Dosage: 3RD CYCLE
     Route: 050
     Dates: start: 20120917, end: 20120917
  4. FLOXAL [Concomitant]
     Dosage: 1ST CYCLE
     Route: 047
     Dates: start: 20120719
  5. FLOXAL [Concomitant]
     Dosage: 2ND CYCLE
     Route: 065
     Dates: start: 20120816
  6. FLOXAL [Concomitant]
     Dosage: 3RD CYCLE
     Route: 065
     Dates: start: 20120917, end: 20120921

REACTIONS (3)
  - Uveitis [Recovered/Resolved]
  - Cystoid macular oedema [Recovered/Resolved]
  - Conjunctivitis [Recovered/Resolved]
